FAERS Safety Report 6946118-0 (Version None)
Quarter: 2010Q3

REPORT INFORMATION
  Report Type: 
  Country: None (occurrence: None)
  Receive Date: 20100817
  Receipt Date: 20091113
  Transmission Date: 20110219
  Serious: No
  Sender: FDA-Public Use
  Company Number: 20096482

PATIENT
  Age: 32 Year
  Sex: Male

DRUGS (1)
  1. LIORESAL [Suspect]
     Indication: MUSCLE SPASTICITY
     Dosage: UNK MCG; DAILY, INTRATHECAL
     Route: 037

REACTIONS (2)
  - DRUG INEFFECTIVE [None]
  - HYPERTONIA [None]
